FAERS Safety Report 14116214 (Version 1)
Quarter: 2017Q4

REPORT INFORMATION
  Report Type: Spontaneous
  Country: US (occurrence: US)
  Receive Date: 20171023
  Receipt Date: 20171023
  Transmission Date: 20180321
  Serious: Yes (Other)
  Sender: FDA-Public Use
  Company Number: US-MUNDIPHARMA DS AND PHARMACOVIGILANCE-USA-2017-0138685

PATIENT
  Sex: Male

DRUGS (2)
  1. OXYCONTIN [Suspect]
     Active Substance: OXYCODONE HYDROCHLORIDE
     Indication: PRODUCT USED FOR UNKNOWN INDICATION
     Dosage: UNK
     Route: 048
  2. OXYCODONE HYDROCHLORIDE (SIMILAR TO NDA 22-272) [Suspect]
     Active Substance: OXYCODONE HYDROCHLORIDE
     Indication: PRODUCT USED FOR UNKNOWN INDICATION
     Dosage: UNK
     Route: 048

REACTIONS (9)
  - Exophthalmos [Unknown]
  - Drug withdrawal syndrome [Recovered/Resolved]
  - Logorrhoea [Unknown]
  - Drug dependence [Recovered/Resolved]
  - Judgement impaired [Unknown]
  - Drug abuse [Recovered/Resolved]
  - Psychomotor hyperactivity [Unknown]
  - Malaise [Recovered/Resolved]
  - Mania [Unknown]
